FAERS Safety Report 13667530 (Version 1)
Quarter: 2017Q2

REPORT INFORMATION
  Report Type: Spontaneous
  Country: US (occurrence: US)
  Receive Date: 20170619
  Receipt Date: 20170619
  Transmission Date: 20170830
  Serious: No
  Sender: FDA-Public Use
  Company Number: None

PATIENT
  Age: 44 Year
  Sex: Female
  Weight: 121.5 kg

DRUGS (8)
  1. CYMBALS [Concomitant]
  2. LYRICS [Concomitant]
  3. FLUOXETINE [Suspect]
     Active Substance: FLUOXETINE HYDROCHLORIDE
     Indication: OBSESSIVE-COMPULSIVE DISORDER
     Dosage: ?          QUANTITY:2 TABLET(S);?
     Route: 048
  4. LUVOX [Suspect]
     Active Substance: FLUVOXAMINE MALEATE
  5. OXYCODONE [Concomitant]
     Active Substance: OXYCODONE
  6. SYNTHROID [Concomitant]
     Active Substance: LEVOTHYROXINE SODIUM
  7. MORPHINE [Concomitant]
     Active Substance: MORPHINE
  8. OMEPRAZOLE. [Concomitant]
     Active Substance: OMEPRAZOLE

REACTIONS (7)
  - Muscle twitching [None]
  - Diaphragmatic disorder [None]
  - Oesophageal disorder [None]
  - Tremor [None]
  - Dysphemia [None]
  - Laryngeal disorder [None]
  - Dysphagia [None]

NARRATIVE: CASE EVENT DATE: 20170501
